FAERS Safety Report 12705555 (Version 1)
Quarter: 2016Q3

REPORT INFORMATION
  Report Type: Spontaneous
  Country: US (occurrence: None)
  Receive Date: 20160831
  Receipt Date: 20160831
  Transmission Date: 20161109
  Serious: No
  Sender: FDA-Public Use
  Company Number: None

PATIENT
  Age: 78 Year
  Sex: Female
  Weight: 114.31 kg

DRUGS (1)
  1. LYRICA [Suspect]
     Active Substance: PREGABALIN
     Indication: RESTLESS LEGS SYNDROME
     Dosage: 1 OR 2 PILLS BEDTIME MOUTH
     Route: 048
     Dates: start: 20160729, end: 20160804

REACTIONS (2)
  - Oral mucosal blistering [None]
  - Oropharyngeal pain [None]

NARRATIVE: CASE EVENT DATE: 20160702
